FAERS Safety Report 10927732 (Version 2)
Quarter: 2015Q3

REPORT INFORMATION
  Report Type: Report from Study
  Country: BR (occurrence: US)
  Receive Date: 20150319
  Receipt Date: 20150805
  Transmission Date: 20151125
  Serious: Yes (Hospitalization, Other)
  Sender: FDA-Public Use
  Company Number: BR-ROCHE-1552469

PATIENT
  Sex: Female
  Weight: 90 kg

DRUGS (4)
  1. MABTHERA [Suspect]
     Active Substance: RITUXIMAB
     Indication: RHEUMATOID ARTHRITIS
     Route: 042
     Dates: start: 20140325
  2. MABTHERA [Suspect]
     Active Substance: RITUXIMAB
     Route: 042
     Dates: start: 201409
  3. CORTISONE [Suspect]
     Active Substance: CORTISONE\HYDROCORTISONE
     Indication: PRODUCT USED FOR UNKNOWN INDICATION
     Route: 065
     Dates: start: 2015
  4. ARAVA [Concomitant]
     Active Substance: LEFLUNOMIDE
     Indication: INFLAMMATION
     Route: 065

REACTIONS (6)
  - Pneumonia [Unknown]
  - Immunodeficiency [Unknown]
  - Arthralgia [Not Recovered/Not Resolved]
  - Bacterial infection [Unknown]
  - Drug-induced liver injury [Unknown]
  - Depression [Unknown]

NARRATIVE: CASE EVENT DATE: 2015
